FAERS Safety Report 4436289-2 (Version None)
Quarter: 2004Q3

REPORT INFORMATION
  Report Type: 
  Country: None (occurrence: None)
  Receive Date: 20040830
  Receipt Date: 20040707
  Transmission Date: 20050211
  Serious: No
  Sender: FDA-Public Use
  Company Number: US-BRISTOL-MYERS SQUIBB COMPANY-12634341

PATIENT
  Age: 58 Year
  Sex: Male
  Weight: 81 kg

DRUGS (6)
  1. ERBITUX [Suspect]
     Route: 042
     Dates: start: 20040302, end: 20040302
  2. ALOXI [Concomitant]
     Route: 040
     Dates: start: 20040302, end: 20040302
  3. BENADRYL [Concomitant]
     Route: 042
     Dates: start: 20040302, end: 20040302
  4. CPT-11 [Concomitant]
     Route: 042
     Dates: start: 20040302, end: 20040302
  5. DECADRON [Concomitant]
     Route: 042
     Dates: start: 20040302, end: 20040302
  6. ZANTAC [Concomitant]
     Route: 042
     Dates: start: 20040302, end: 20040302

REACTIONS (5)
  - DERMATITIS ACNEIFORM [None]
  - DIARRHOEA [None]
  - NAUSEA [None]
  - VOMITING [None]
  - WEIGHT DECREASED [None]
